FAERS Safety Report 5235299-5 (Version None)
Quarter: 2007Q1

REPORT INFORMATION
  Report Type: 
  Country: None (occurrence: None)
  Receive Date: 20070201
  Receipt Date: 20070201
  Transmission Date: 20070707
  Serious: No
  Sender: FDA-Public Use
  Company Number: None

PATIENT

DRUGS (2)
  1. AZITHROMYCIN [Suspect]
     Dosage: SUSPENSION
  2. AZITHROMYCIN [Suspect]
     Dosage: SUSPENSION

REACTIONS (6)
  - ABDOMINAL PAIN [None]
  - CRYING [None]
  - DIARRHOEA [None]
  - DRUG DISPENSING ERROR [None]
  - INCORRECT DOSE ADMINISTERED [None]
  - MEDICATION ERROR [None]
